FAERS Safety Report 7508929-2 (Version None)
Quarter: 2011Q2

REPORT INFORMATION
  Report Type: 
  Country: None (occurrence: None)
  Receive Date: 20110519
  Receipt Date: 20110504
  Transmission Date: 20111010
  Serious: Yes (Hospitalization)
  Sender: FDA-Public Use
  Company Number: GB-DEXPHARM-20110498

PATIENT
  Age: 63 Year
  Sex: Female

DRUGS (2)
  1. OMEPRAZOLE [Suspect]
  2. TPN [Suspect]
     Dosage: 250 MMOL MILLIMOLE(S) SEP. DOSAGES/INTERVAL: 1 IN 1 DAY, INTRAVENOUS(NOT OTHERWISE SPECIFIED)
     Route: 042

REACTIONS (11)
  - ACIDOSIS HYPERCHLORAEMIC [None]
  - DEVICE RELATED SEPSIS [None]
  - TRACHEAL OBSTRUCTION [None]
  - LOWER RESPIRATORY TRACT INFECTION [None]
  - HYPERVENTILATION [None]
  - BLOOD CREATININE INCREASED [None]
  - INCREASED VISCOSITY OF BRONCHIAL SECRETION [None]
  - EMPHYSEMA [None]
  - BACTERAEMIA [None]
  - BRONCHITIS CHRONIC [None]
  - PNEUMONIA [None]
